FAERS Safety Report 4955835-3 (Version None)
Quarter: 2006Q1

REPORT INFORMATION
  Report Type: 
  Country: None (occurrence: None)
  Receive Date: 20060323
  Receipt Date: 20060313
  Transmission Date: 20060701
  Serious: Yes (Hospitalization)
  Sender: FDA-Public Use
  Company Number: GB 2006 0002

PATIENT
  Age: 26 Year
  Sex: Female

DRUGS (5)
  1. DOTAREM  -MEGLUMINE GADOTERATE [Suspect]
     Indication: NUCLEAR MAGNETIC RESONANCE IMAGING
     Dosage: 15 ML PER DAY INTRA-VEINOUS
     Route: 042
     Dates: start: 20051026
  2. HRF - GONADORELIN [Concomitant]
  3. PROTIRELIN    -THYROTROPHIN RELEASING HORMONE [Concomitant]
  4. SYNCTHENE   -TETRACOSACTIDE [Concomitant]
  5. EMLA   -LIDOCAINE [Concomitant]

REACTIONS (3)
  - DRUG INTOLERANCE [None]
  - INFUSION SITE EXTRAVASATION [None]
  - INJECTION SITE ABSCESS [None]
